FAERS Safety Report 22333763 (Version 3)
Quarter: 2024Q2

REPORT INFORMATION
  Report Type: Spontaneous
  Country: JP (occurrence: JP)
  Receive Date: 20230517
  Receipt Date: 20240401
  Transmission Date: 20240715
  Serious: Yes (Hospitalization, Other)
  Sender: FDA-Public Use
  Company Number: JP-ONO-2023JP012109

PATIENT
  Age: 80 Year
  Sex: Male

DRUGS (6)
  1. OPDIVO [Suspect]
     Active Substance: NIVOLUMAB
     Indication: Gastric cancer
     Route: 041
     Dates: start: 20221021, end: 20221111
  2. TS-1 [Suspect]
     Active Substance: GIMERACIL\OTERACIL POTASSIUM\TEGAFUR
     Indication: Gastric cancer
  3. TS-1 [Suspect]
     Active Substance: GIMERACIL\OTERACIL POTASSIUM\TEGAFUR
     Dosage: 60 MG
  4. TS-1 [Suspect]
     Active Substance: GIMERACIL\OTERACIL POTASSIUM\TEGAFUR
     Dosage: UNK MG
  5. OXALIPLATIN [Concomitant]
     Active Substance: OXALIPLATIN
     Indication: Gastric cancer
     Dosage: 60% DOSE
  6. OXALIPLATIN [Concomitant]
     Active Substance: OXALIPLATIN
     Dosage: 60% DOSE

REACTIONS (3)
  - Decreased appetite [Recovering/Resolving]
  - Pyrexia [Unknown]
  - Immune-mediated enterocolitis [Unknown]
